FAERS Safety Report 25361051 (Version 2)
Quarter: 2025Q2

REPORT INFORMATION
  Report Type: Other
  Country: ES (occurrence: ES)
  Receive Date: 20250527
  Receipt Date: 20250623
  Transmission Date: 20250716
  Serious: Yes (Hospitalization)
  Sender: ZYDUS PHARM
  Company Number: None

PATIENT

DRUGS (4)
  1. ACETAMINOPHEN [Suspect]
     Active Substance: ACETAMINOPHEN
     Indication: Suicidal ideation
     Route: 048
     Dates: start: 20241021, end: 20241021
  2. IBUPROFEN [Suspect]
     Active Substance: IBUPROFEN
     Indication: Suicidal ideation
     Route: 048
     Dates: start: 20241021, end: 20241021
  3. LORAZEPAM [Suspect]
     Active Substance: LORAZEPAM
     Indication: Suicidal ideation
     Route: 048
     Dates: start: 20241021, end: 20241021
  4. ACETAMINOPHEN\CODEINE PHOSPHATE [Suspect]
     Active Substance: ACETAMINOPHEN\CODEINE PHOSPHATE
     Indication: Suicidal ideation
     Route: 048
     Dates: start: 20241021, end: 20241021

REACTIONS (3)
  - Hypocoagulable state [Recovered/Resolved]
  - Hepatic cytolysis [Recovered/Resolved]
  - Intentional overdose [Recovered/Resolved]

NARRATIVE: CASE EVENT DATE: 20241021
